FAERS Safety Report 7138246-4 (Version None)
Quarter: 2010Q4

REPORT INFORMATION
  Report Type: 
  Country: None (occurrence: None)
  Receive Date: 20101202
  Receipt Date: 20101202
  Transmission Date: 20110411
  Serious: Yes (Life-Threatening, Hospitalization)
  Sender: FDA-Public Use
  Company Number: None

PATIENT
  Age: 52 Year
  Sex: Male
  Weight: 127 kg

DRUGS (2)
  1. ACETAMINOPHEN [Suspect]
     Indication: PAIN
     Dosage: N/A
     Dates: start: 20101106, end: 20101106
  2. GABAPENTIN [Suspect]
     Indication: PAIN
     Dosage: N/A
     Dates: start: 20101106, end: 20101106

REACTIONS (3)
  - SEDATION [None]
  - SELF-MEDICATION [None]
  - SOMNOLENCE [None]
